FAERS Safety Report 25545430 (Version 2)
Quarter: 2025Q3

REPORT INFORMATION
  Report Type: Report from Study
  Country: PH (occurrence: PH)
  Receive Date: 20250711
  Receipt Date: 20250729
  Transmission Date: 20251020
  Serious: Yes (Hospitalization)
  Sender: OTSUKA
  Company Number: PH-MMM-Otsuka-FHJ34C8A

PATIENT

DRUGS (1)
  1. TOLVAPTAN [Suspect]
     Active Substance: TOLVAPTAN
     Indication: Blood sodium decreased
     Dosage: 0.5 DF, DAILY (15 MG HALF TABLET DAILY FOR NOW)
     Route: 048

REACTIONS (3)
  - Blood sodium decreased [Unknown]
  - Underdose [Unknown]
  - Wrong technique in product usage process [Unknown]
